FAERS Safety Report 4387974-2 (Version None)
Quarter: 2004Q2

REPORT INFORMATION
  Report Type: 
  Country: None (occurrence: None)
  Receive Date: 20040607
  Receipt Date: 20030408
  Transmission Date: 20050107
  Serious: Yes (Other)
  Sender: FDA-Public Use
  Company Number: 334094

PATIENT
  Age: 18 Year
  Sex: Male
  Weight: 90.7 kg

DRUGS (1)
  1. ACCUTANE(ISOTERTINOIN) 40 MG [Suspect]
     Indication: DRUG USE FOR UNKNOWN INDICATION
     Dosage: 40 MG 2 PER DAY ORAL
     Route: 048
     Dates: start: 20030106, end: 20030310

REACTIONS (5)
  - ERYTHEMA [None]
  - LEUKOCYTOCLASTIC VASCULITIS [None]
  - OEDEMA PERIPHERAL [None]
  - SKIN DISCOLOURATION [None]
  - TENDERNESS [None]
